FAERS Safety Report 19674083 (Version 1)
Quarter: 2021Q3

REPORT INFORMATION
  Report Type: Spontaneous
  Country: CO (occurrence: CO)
  Receive Date: 20210809
  Receipt Date: 20210809
  Transmission Date: 20211014
  Serious: Yes (Hospitalization, Other)
  Sender: FDA-Public Use
  Company Number: CO-AMGEN-COLSP2021119960

PATIENT
  Age: 50 Year
  Sex: Female

DRUGS (7)
  1. PREDNISONE. [Concomitant]
     Active Substance: PREDNISONE
     Indication: HAEMATOPOIETIC STEM CELL MOBILISATION
     Dosage: 60 MILLIGRAM, QD
     Dates: start: 2017
  2. RITUXIMAB. [Concomitant]
     Active Substance: RITUXIMAB
     Indication: HAEMATOPOIETIC STEM CELL MOBILISATION
     Dosage: 375 MILLIGRAM/SQ. METER, Q4WK
     Route: 042
     Dates: start: 2017
  3. FILGRASTIM [Suspect]
     Active Substance: FILGRASTIM
     Indication: HAEMATOPOIETIC STEM CELL MOBILISATION
     Dosage: UNK
     Route: 065
     Dates: start: 2017
  4. RABBIT ANTI HUMAN THYMOCYTE IMMUNOGLOBULIN [Concomitant]
     Active Substance: LAPINE T-LYMPHOCYTE IMMUNE GLOBULIN
     Indication: HAEMATOPOIETIC STEM CELL MOBILISATION
     Dosage: UNK
     Dates: start: 2017
  5. AZATHIOPRINE. [Concomitant]
     Active Substance: AZATHIOPRINE
     Indication: HAEMATOPOIETIC STEM CELL MOBILISATION
     Dosage: 50 MILLIGRAM, Q8H
     Dates: start: 2017
  6. CYCLOPHOSPHAMIDE. [Concomitant]
     Active Substance: CYCLOPHOSPHAMIDE
     Indication: HAEMATOPOIETIC STEM CELL MOBILISATION
     Dosage: 1 GRAM, QMO (FOR 6 MONTHS)
     Route: 042
     Dates: start: 2017
  7. PYRIDOSTIGMINE [Concomitant]
     Active Substance: PYRIDOSTIGMINE
     Indication: HAEMATOPOIETIC STEM CELL MOBILISATION
     Dosage: 60 MILLIGRAM, Q6H
     Dates: start: 2017

REACTIONS (2)
  - Myasthenia gravis crisis [Unknown]
  - Seizure [Unknown]

NARRATIVE: CASE EVENT DATE: 2017
